FAERS Safety Report 5139224-7 (Version None)
Quarter: 2006Q4

REPORT INFORMATION
  Report Type: 
  Country: None (occurrence: None)
  Receive Date: 20061030
  Receipt Date: 20060717
  Transmission Date: 20070319
  Serious: No
  Sender: FDA-Public Use
  Company Number: US-GLAXOSMITHKLINE-A0612508A

PATIENT
  Age: 68 Year
  Sex: Male

DRUGS (4)
  1. ADVAIR HFA [Suspect]
     Indication: ASTHMA
     Dosage: 1PUFF TWICE PER DAY
     Route: 055
  2. LOTENSIN [Concomitant]
  3. GLIPIZIDE [Concomitant]
  4. MOBIC [Concomitant]

REACTIONS (7)
  - DYSPHONIA [None]
  - HYPOAESTHESIA [None]
  - MUSCLE SPASMS [None]
  - MUSCULAR WEAKNESS [None]
  - PARAESTHESIA [None]
  - VISION BLURRED [None]
  - WEIGHT INCREASED [None]
